FAERS Safety Report 6016078-8 (Version None)
Quarter: 2008Q4

REPORT INFORMATION
  Report Type: 
  Country: None (occurrence: None)
  Receive Date: 20081218
  Receipt Date: 20081126
  Transmission Date: 20090506
  Serious: Yes (Other)
  Sender: FDA-Public Use
  Company Number: PAR_02479_2008

PATIENT
  Age: 12 Month
  Sex: Male
  Weight: 7 kg

DRUGS (2)
  1. IBUPROFEN [Suspect]
     Indication: DRUG USE FOR UNKNOWN INDICATION
     Dosage: (DF ORAL)
     Route: 048
  2. OXACILLIN [Concomitant]

REACTIONS (7)
  - GASTRITIS EROSIVE [None]
  - GASTROINTESTINAL HAEMORRHAGE [None]
  - GASTROINTESTINAL ISCHAEMIA [None]
  - HAEMATEMESIS [None]
  - MELAENA [None]
  - SHOCK [None]
  - THERMAL BURN [None]
